FAERS Safety Report 9337968 (Version 2)
Quarter: 2013Q2

REPORT INFORMATION
  Report Type: Report from Study
  Country: AR (occurrence: AR)
  Receive Date: 20130609
  Receipt Date: 20130620
  Transmission Date: 20140414
  Serious: Yes (Other)
  Sender: FDA-Public Use
  Company Number: PHHY2013AR057938

PATIENT
  Sex: Male

DRUGS (1)
  1. DIOVAN D [Suspect]
     Indication: HYPERTENSION
     Dosage: 0.5 DF (160/25 MG), DAILY
     Route: 048

REACTIONS (3)
  - Ocular neoplasm [Not Recovered/Not Resolved]
  - Blindness [Not Recovered/Not Resolved]
  - Wrong technique in drug usage process [Unknown]
